FAERS Safety Report 5088886-1 (Version None)
Quarter: 2006Q3

REPORT INFORMATION
  Report Type: 
  Country: None (occurrence: None)
  Receive Date: 20060825
  Receipt Date: 20060816
  Transmission Date: 20061208
  Serious: Yes (Other)
  Sender: FDA-Public Use
  Company Number: US-MERCK-0608USA04229

PATIENT
  Age: 57 Year
  Sex: Male

DRUGS (4)
  1. CRIXIVAN [Suspect]
     Indication: HIV INFECTION
     Route: 048
     Dates: start: 20000501, end: 20011001
  2. STAVUDINE [Suspect]
     Indication: HIV INFECTION
     Route: 065
     Dates: start: 20000501, end: 20011001
  3. DIDANOSINE [Suspect]
     Indication: HIV INFECTION
     Route: 065
     Dates: start: 20000501, end: 20011001
  4. RITONAVIR [Suspect]
     Indication: HIV INFECTION
     Route: 065
     Dates: start: 20000501, end: 20011001

REACTIONS (9)
  - BODY FAT DISORDER [None]
  - DIABETES MELLITUS NON-INSULIN-DEPENDENT [None]
  - DRUG TOXICITY [None]
  - FATIGUE [None]
  - HYPERTENSION [None]
  - HYPERTRIGLYCERIDAEMIA [None]
  - OSTEONECROSIS [None]
  - OSTEOPOROSIS [None]
  - RIB FRACTURE [None]
